FAERS Safety Report 14769006 (Version 1)
Quarter: 2018Q2

REPORT INFORMATION
  Report Type: Spontaneous
  Country: US (occurrence: US)
  Receive Date: 20180417
  Receipt Date: 20180417
  Transmission Date: 20180711
  Serious: Yes (Hospitalization)
  Sender: FDA-Public Use
  Company Number: US-LPDUSPRD-20180573

PATIENT
  Age: 47 Year
  Sex: Male

DRUGS (2)
  1. VASOPRESSIN INJECTION, USP (0410-10) [Suspect]
     Active Substance: VASOPRESSIN
     Dosage: 0.04 U/MINUTE
  2. NOREPINEPHRINE. [Concomitant]
     Active Substance: NOREPINEPHRINE
     Dosage: UNKNOWN
     Route: 065

REACTIONS (2)
  - Off label use [Unknown]
  - Diabetes insipidus [Recovered/Resolved]
